FAERS Safety Report 5114162-4 (Version None)
Quarter: 2006Q3

REPORT INFORMATION
  Report Type: 
  Country: None (occurrence: None)
  Receive Date: 20060925
  Receipt Date: 20060913
  Transmission Date: 20061208
  Serious: Yes (Other)
  Sender: FDA-Public Use
  Company Number: US-JNJFOC-20060702054

PATIENT
  Sex: Female
  Weight: 63.05 kg

DRUGS (7)
  1. ELMIRON [Suspect]
     Indication: CYSTITIS INTERSTITIAL
     Dosage: 1 CAPSULE AT AM AND 2 CAPSULES AT PM
     Route: 048
  2. AMITRIPTYLINE HCL [Concomitant]
     Indication: CYSTITIS INTERSTITIAL
     Route: 048
  3. CLARINEX [Concomitant]
     Indication: MULTIPLE ALLERGIES
  4. SINGULAIR [Concomitant]
     Indication: ASTHMA
  5. NASONEX [Concomitant]
     Indication: MULTIPLE ALLERGIES
  6. PATANOL [Concomitant]
     Indication: MULTIPLE ALLERGIES
  7. BENAZEPRIL HYDROCHLORIDE [Concomitant]
     Indication: HYPERTENSION

REACTIONS (4)
  - CAROTID ARTERY OCCLUSION [None]
  - CEREBROVASCULAR ACCIDENT [None]
  - DIZZINESS [None]
  - OCULAR VASCULAR DISORDER [None]
